FAERS Safety Report 5217083-1 (Version None)
Quarter: 2007Q1

REPORT INFORMATION
  Report Type: 
  Country: None (occurrence: None)
  Receive Date: 20070118
  Receipt Date: 20070111
  Transmission Date: 20070707
  Serious: Yes (Hospitalization)
  Sender: FDA-Public Use
  Company Number: HQWYE830512JUL06

PATIENT
  Age: 70 Year
  Sex: Male

DRUGS (11)
  1. MYLOTARG [Suspect]
     Indication: ACUTE MYELOID LEUKAEMIA RECURRENT
     Dosage: A SINGLE 9 MG/M^2 DOSE; SEE IMAGE
     Route: 041
     Dates: start: 20060511, end: 20060511
  2. MYLOTARG [Suspect]
     Indication: ACUTE MYELOID LEUKAEMIA RECURRENT
     Dosage: A SINGLE 9 MG/M^2 DOSE; SEE IMAGE
     Route: 041
     Dates: start: 20060529, end: 20060529
  3. TSUKUSHI AM (ALUMINUM HYDROXIDE GEL, DRIED/CALCIUM CARBONATE/LIPASE/MA [Concomitant]
  4. ISODINE (PROVIDONE-IODINE) [Concomitant]
  5. POLYMYXIN B SULFATE (POLYMYXIN B SULFATE) [Concomitant]
  6. ITRACONAZOLE [Concomitant]
  7. FAMOTIDINE [Concomitant]
  8. NITRAZEPAM [Concomitant]
  9. SOLITA T (ELECTROLYTES NOS) [Concomitant]
  10. LECICARBON (POTASSIUM BITARTRATE/SODIUM BICARBONATE) [Concomitant]
  11. MAXIPIME [Concomitant]

REACTIONS (12)
  - ALANINE AMINOTRANSFERASE INCREASED [None]
  - ANAEMIA [None]
  - BLOOD ALKALINE PHOSPHATASE INCREASED [None]
  - BLOOD PRESSURE INCREASED [None]
  - C-REACTIVE PROTEIN INCREASED [None]
  - FIBRIN DEGRADATION PRODUCTS INCREASED [None]
  - HEPATIC FUNCTION ABNORMAL [None]
  - NAUSEA [None]
  - NEUTROPHIL COUNT DECREASED [None]
  - NEUTROPHIL PERCENTAGE INCREASED [None]
  - PLATELET COUNT DECREASED [None]
  - PSEUDOMONAL BACTERAEMIA [None]
